FAERS Safety Report 15353205 (Version 2)
Quarter: 2018Q4

REPORT INFORMATION
  Report Type: Spontaneous
  Country: CO (occurrence: CO)
  Receive Date: 20180905
  Receipt Date: 20181101
  Transmission Date: 20190204
  Serious: Yes (Other)
  Sender: FDA-Public Use
  Company Number: CO-AMGEN-COLSP2016159220

PATIENT
  Age: 74 Year
  Sex: Female

DRUGS (2)
  1. ENBREL [Suspect]
     Active Substance: ETANERCEPT
     Indication: PRODUCT USED FOR UNKNOWN INDICATION
     Dosage: 50 MG, WEEKLY
     Route: 058
     Dates: start: 2008, end: 20180822
  2. ENBREL [Suspect]
     Active Substance: ETANERCEPT
     Dosage: 50 MG, SOMETIMES WEEKLY, SOMETIMES TWICE PER WEEK
     Route: 058

REACTIONS (7)
  - Pruritus [Not Recovered/Not Resolved]
  - Localised infection [Not Recovered/Not Resolved]
  - Gout [Not Recovered/Not Resolved]
  - Peripheral swelling [Not Recovered/Not Resolved]
  - Cholelithiasis [Recovering/Resolving]
  - Muscle spasms [Not Recovered/Not Resolved]
  - Erythema [Not Recovered/Not Resolved]

NARRATIVE: CASE EVENT DATE: 201606
